FAERS Safety Report 15834126 (Version 1)
Quarter: 2019Q1

REPORT INFORMATION
  Report Type: Spontaneous
  Country: FR (occurrence: FR)
  Receive Date: 20190116
  Receipt Date: 20190116
  Transmission Date: 20190417
  Serious: Yes (Death)
  Sender: FDA-Public Use
  Company Number: FR-ALLERGAN-1901840US

PATIENT
  Age: 76 Year
  Sex: Female

DRUGS (2)
  1. XENAZINE [Suspect]
     Active Substance: TETRABENAZINE
     Indication: DYSKINESIA
     Dosage: 1 DF, QD
     Route: 048
  2. BOTOX [Suspect]
     Active Substance: ONABOTULINUMTOXINA
     Indication: SALIVARY HYPERSECRETION
     Dosage: 1 DF, SINGLE
     Route: 050

REACTIONS (6)
  - Dysphagia [Fatal]
  - Acute respiratory distress syndrome [Fatal]
  - Choking [Fatal]
  - Dyspnoea [Fatal]
  - Incorrect route of product administration [Unknown]
  - Off label use [Unknown]

NARRATIVE: CASE EVENT DATE: 20181005
